FAERS Safety Report 5816704-X (Version None)
Quarter: 2008Q3

REPORT INFORMATION
  Report Type: 
  Country: None (occurrence: None)
  Receive Date: 20080721
  Receipt Date: 20080711
  Transmission Date: 20090109
  Serious: Yes (Hospitalization, Other)
  Sender: FDA-Public Use
  Company Number: US-PFIZER INC-2008058424

PATIENT
  Sex: Female

DRUGS (6)
  1. NORVASC [Suspect]
     Route: 048
  2. NORVASC [Suspect]
     Route: 048
  3. NORVASC [Suspect]
     Route: 048
  4. CLONIDINE [Concomitant]
  5. ATENOLOL [Concomitant]
  6. LASIX [Concomitant]

REACTIONS (2)
  - OVERDOSE [None]
  - UNEVALUABLE EVENT [None]
